FAERS Safety Report 8816848 (Version 1)
Quarter: 2012Q4

REPORT INFORMATION
  Report Type: Spontaneous
  Country: US (occurrence: None)
  Receive Date: 20121002
  Receipt Date: 20121002
  Transmission Date: 20130627
  Serious: No
  Sender: FDA-Public Use
  Company Number: None

PATIENT

DRUGS (1)
  1. ZOLPIDEM [Suspect]
     Indication: INSOMNIA
     Dosage: 12.5 mg qhs po
     Route: 048
     Dates: start: 20111223, end: 20120917

REACTIONS (2)
  - Sleep-related eating disorder [None]
  - Product substitution issue [None]
